FAERS Safety Report 9435936 (Version 1)
Quarter: 2013Q3

REPORT INFORMATION
  Report Type: Spontaneous
  Country: US (occurrence: US)
  Receive Date: 20130801
  Receipt Date: 20130801
  Transmission Date: 20140515
  Serious: Yes (Hospitalization)
  Sender: FDA-Public Use
  Company Number: US-BAXTER-2013BAX030142

PATIENT
  Age: 73 Year
  Sex: Male

DRUGS (10)
  1. DIANEAL LOW CALCIUM [Suspect]
     Indication: PERITONEAL DIALYSIS
     Route: 033
     Dates: start: 201108, end: 201306
  2. DIANEAL LOW CALCIUM [Suspect]
     Route: 033
     Dates: start: 201306
  3. DIANEAL LOW CALCIUM [Suspect]
     Route: 033
     Dates: start: 201306
  4. DIANEAL LOW CALCIUM [Suspect]
     Indication: PERITONEAL DIALYSIS
     Route: 033
     Dates: start: 201108, end: 201306
  5. DIANEAL LOW CALCIUM [Suspect]
     Route: 033
     Dates: start: 201306
  6. DIANEAL LOW CALCIUM [Suspect]
     Route: 033
     Dates: start: 201306
  7. DIANEAL LOW CALCIUM [Suspect]
     Indication: PERITONEAL DIALYSIS
     Route: 033
     Dates: start: 201108, end: 201306
  8. DIANEAL LOW CALCIUM [Suspect]
     Route: 033
     Dates: start: 201306
  9. DIANEAL LOW CALCIUM [Suspect]
     Route: 033
     Dates: start: 201306
  10. DIANEAL LOW CALCIUM (ULTRABAG) [Suspect]
     Indication: PERITONEAL DIALYSIS
     Route: 033

REACTIONS (2)
  - Pulmonary oedema [Recovered/Resolved]
  - Fluid retention [Recovered/Resolved]
